FAERS Safety Report 5983618-4 (Version None)
Quarter: 2008Q4

REPORT INFORMATION
  Report Type: 
  Country: None (occurrence: None)
  Receive Date: 20081208
  Receipt Date: 20081127
  Transmission Date: 20090506
  Serious: Yes (Life-Threatening, Other)
  Sender: FDA-Public Use
  Company Number: GB-PFIZER INC-2008101179

PATIENT

DRUGS (4)
  1. PHENYTOIN [Suspect]
     Indication: GLIOBLASTOMA MULTIFORME
     Route: 048
     Dates: start: 20081001, end: 20081107
  2. PHENYTOIN [Suspect]
     Indication: CONVULSION
  3. VALPROATE SODIUM [Concomitant]
     Indication: CONVULSION
     Dates: start: 20081001, end: 20081107
  4. DEXAMETHASONE [Concomitant]

REACTIONS (4)
  - BODY TEMPERATURE INCREASED [None]
  - HEPATIC FAILURE [None]
  - LIVER FUNCTION TEST ABNORMAL [None]
  - RASH [None]
